FAERS Safety Report 6932548-X (Version None)
Quarter: 2010Q3

REPORT INFORMATION
  Report Type: 
  Country: None (occurrence: None)
  Receive Date: 20100817
  Receipt Date: 20100805
  Transmission Date: 20110219
  Serious: Yes (Hospitalization, Other)
  Sender: FDA-Public Use
  Company Number: 2010AC000486

PATIENT
  Age: 77 Year
  Sex: Female

DRUGS (21)
  1. DIGOXIN [Suspect]
     Dosage: 0.125 MG;UNKNOWN;PO
     Route: 048
     Dates: start: 20000818, end: 20020101
  2. DIGOXIN [Suspect]
     Dosage: 0.125 MG;UNKNOWN;PO
     Route: 048
     Dates: start: 20030702, end: 20030101
  3. DIGOXIN [Suspect]
     Dosage: 0.125 MG;UNKNOWN;PO
     Route: 048
     Dates: start: 20071127, end: 20080426
  4. DIGOXIN [Suspect]
     Dosage: 0.125 MG;QOD;PO
     Route: 048
     Dates: start: 20080428, end: 20090101
  5. LIPITOR [Concomitant]
  6. ACIPHEX [Concomitant]
  7. ATACAND [Concomitant]
  8. COUMADIN [Concomitant]
  9. POTASSIUM CHLORIDE [Concomitant]
  10. TOPROL-XL [Concomitant]
  11. PLAVIX [Concomitant]
  12. MAXZIDE [Concomitant]
  13. FOSAMAX [Concomitant]
  14. MOBIC [Concomitant]
  15. ROBAXIN [Concomitant]
  16. MULTI-VITAMIN [Concomitant]
  17. CALCIUM [Concomitant]
  18. VIT. D [Concomitant]
  19. ATIVAN [Concomitant]
  20. LOVENOX [Concomitant]
  21. AMBIEN [Concomitant]

REACTIONS (48)
  - ABDOMINAL DISCOMFORT [None]
  - ALANINE AMINOTRANSFERASE INCREASED [None]
  - AORTIC ARTERIOSCLEROSIS [None]
  - AORTIC VALVE INCOMPETENCE [None]
  - ARRHYTHMIA [None]
  - ARTERIOSCLEROSIS [None]
  - ASPARTATE AMINOTRANSFERASE INCREASED [None]
  - ATRIOVENTRICULAR BLOCK FIRST DEGREE [None]
  - BLOOD ALBUMIN DECREASED [None]
  - BLOOD CHLORIDE INCREASED [None]
  - BLOOD GLUCOSE INCREASED [None]
  - BLOOD SODIUM INCREASED [None]
  - BLOOD UREA INCREASED [None]
  - BRADYCARDIA [None]
  - BRAIN NATRIURETIC PEPTIDE INCREASED [None]
  - BRONCHITIS [None]
  - BUNDLE BRANCH BLOCK LEFT [None]
  - CARDIAC DISORDER [None]
  - CARDIAC FLUTTER [None]
  - CARDIOACTIVE DRUG LEVEL INCREASED [None]
  - CARDIOMEGALY [None]
  - CHOLELITHIASIS [None]
  - CULTURE URINE POSITIVE [None]
  - DIASTOLIC DYSFUNCTION [None]
  - DIZZINESS [None]
  - ELECTROCARDIOGRAM QRS COMPLEX PROLONGED [None]
  - ESCHERICHIA TEST POSITIVE [None]
  - FAMILY STRESS [None]
  - FLANK PAIN [None]
  - GRANULOMA [None]
  - HYPERTENSION [None]
  - HYPOTENSION [None]
  - LEFT VENTRICULAR HYPERTROPHY [None]
  - MITRAL VALVE INCOMPETENCE [None]
  - MYOCARDIAL INFARCTION [None]
  - MYOCARDIAL ISCHAEMIA [None]
  - PALPITATIONS [None]
  - PRESYNCOPE [None]
  - PULMONARY HYPERTENSION [None]
  - SINUS BRADYCARDIA [None]
  - SYNCOPE [None]
  - TACHYCARDIA [None]
  - TRANSIENT ISCHAEMIC ATTACK [None]
  - TRICUSPID VALVE INCOMPETENCE [None]
  - URINARY TRACT INFECTION [None]
  - VENTRICULAR EXTRASYSTOLES [None]
  - VENTRICULAR TACHYCARDIA [None]
  - VIRAL INFECTION [None]
